FAERS Safety Report 7748986-1 (Version None)
Quarter: 2011Q3

REPORT INFORMATION
  Report Type: 
  Country: None (occurrence: None)
  Receive Date: 20110914
  Receipt Date: 20100413
  Transmission Date: 20111222
  Serious: No
  Sender: FDA-Public Use
  Company Number: US-BAYER-201020310NA

PATIENT
  Sex: Male

DRUGS (1)
  1. MIRENA [Suspect]
     Indication: CONTRACEPTION
     Dosage: 20 MCG/24HR, CONT
     Route: 015
     Dates: start: 20080901

REACTIONS (6)
  - PYREXIA [None]
  - PENILE PAIN [None]
  - AMENORRHOEA [None]
  - HEADACHE [None]
  - VAGINAL HAEMORRHAGE [None]
  - ABDOMINAL PAIN [None]
